FAERS Safety Report 4337475-2 (Version None)
Quarter: 2004Q2

REPORT INFORMATION
  Report Type: 
  Country: None (occurrence: None)
  Receive Date: 20040413
  Receipt Date: 20040413
  Transmission Date: 20050107
  Serious: Yes (Other)
  Sender: FDA-Public Use
  Company Number: None

PATIENT
  Age: 21 Year
  Sex: Female
  Weight: 88.905 kg

DRUGS (1)
  1. DEPO-PROVERA [Suspect]
     Indication: CONTRACEPTION
     Dosage: 150 MG IM Q 3 MONTH
     Route: 030
     Dates: start: 20040227

REACTIONS (2)
  - BLOOD HUMAN CHORIONIC GONADOTROPIN POSITIVE [None]
  - PREGNANCY WITH INJECTABLE CONTRACEPTIVE [None]
